FAERS Safety Report 10073376 (Version 1)
Quarter: 2014Q2

REPORT INFORMATION
  Report Type: Spontaneous
  Country: US (occurrence: US)
  Receive Date: 20140411
  Receipt Date: 20140411
  Transmission Date: 20141212
  Serious: Yes (Other)
  Sender: FDA-Public Use
  Company Number: US-BAYER-2014-052916

PATIENT
  Age: 73 Year
  Sex: Female
  Weight: 88.44 kg

DRUGS (2)
  1. BAYER WOMEN^S LOW STRENGTH ASPIRIN REGIMEN [Suspect]
     Dosage: 1 DF, ONCE
     Route: 048
     Dates: start: 20140406, end: 20140406
  2. BAYER ASPIRIN [Concomitant]
     Indication: ISCHAEMIC HEART DISEASE PROPHYLAXIS

REACTIONS (3)
  - Choking [Recovered/Resolved]
  - Foreign body [Recovered/Resolved]
  - Expired product administered [None]
